FAERS Safety Report 4337405-3 (Version None)
Quarter: 2004Q2

REPORT INFORMATION
  Report Type: 
  Country: None (occurrence: None)
  Receive Date: 20040406
  Receipt Date: 20040311
  Transmission Date: 20050107
  Serious: Yes (Death, Hospitalization)
  Sender: FDA-Public Use
  Company Number: 361553

PATIENT
  Sex: Male

DRUGS (1)
  1. FUZEON [Suspect]
     Indication: HIV INFECTION
     Dosage: SUBCUTANEOUS
     Route: 058
     Dates: start: 20040215

REACTIONS (1)
  - LUNG INFECTION PSEUDOMONAL [None]
